FAERS Safety Report 5034692-3 (Version None)
Quarter: 2006Q2

REPORT INFORMATION
  Report Type: 
  Country: None (occurrence: None)
  Receive Date: 20060621
  Receipt Date: 20060606
  Transmission Date: 20061013
  Serious: Yes (Other)
  Sender: FDA-Public Use
  Company Number: 2006S1004391

PATIENT
  Age: 76 Year
  Sex: Female

DRUGS (5)
  1. FENTANYL TRANSDERMAL SYSTEM [Suspect]
     Indication: PAIN
     Dosage: 25 UG/HR; Q3D TRANS
     Route: 062
     Dates: start: 20060509, end: 20060512
  2. FENTANYL TRANSDERMAL SYSTEM [Suspect]
     Indication: PAIN
     Dosage: 25 UG/HR; Q3D TRANS
     Route: 062
     Dates: start: 20060512, end: 20060515
  3. LEVOTHYROXINE SODIUM [Concomitant]
  4. ESTROGENS CONJUGATED [Concomitant]
  5. VITAMINS [Concomitant]

REACTIONS (2)
  - HYPERSENSITIVITY [None]
  - HYPERVENTILATION [None]
